FAERS Safety Report 7947247-5 (Version None)
Quarter: 2011Q4

REPORT INFORMATION
  Report Type: 
  Country: None (occurrence: None)
  Receive Date: 20111129
  Receipt Date: 20111117
  Transmission Date: 20120403
  Serious: Yes (Other)
  Sender: FDA-Public Use
  Company Number: US-ASTRAZENECA-2011SE70440

PATIENT
  Age: 41 Year
  Sex: Female
  Weight: 45.4 kg

DRUGS (5)
  1. ANTIANXIETY MEDICATION [Concomitant]
  2. INSULIN [Concomitant]
     Indication: DIABETES MELLITUS
  3. SEROQUEL [Suspect]
     Indication: BIPOLAR I DISORDER
     Route: 048
     Dates: start: 20111001, end: 20111101
  4. TRAMADOLE [Concomitant]
  5. SLEEP AID [Concomitant]

REACTIONS (4)
  - ROAD TRAFFIC ACCIDENT [None]
  - JOINT INJURY [None]
  - DIABETES MELLITUS [None]
  - LOSS OF CONSCIOUSNESS [None]
